FAERS Safety Report 4829083-1 (Version None)
Quarter: 2005Q4

REPORT INFORMATION
  Report Type: 
  Country: None (occurrence: None)
  Receive Date: 20051031
  Receipt Date: 20041014
  Transmission Date: 20060501
  Serious: Yes (Other)
  Sender: FDA-Public Use
  Company Number: 200417879US

PATIENT
  Age: 56 Year
  Sex: Female

DRUGS (18)
  1. ARAVA [Suspect]
     Indication: RHEUMATOID ARTHRITIS
     Dosage: 20 MG QD PO
     Route: 048
     Dates: start: 20010112, end: 20041005
  2. METHOTREXATE [Concomitant]
  3. PREDNISONE [Concomitant]
  4. PREVACID [Concomitant]
  5. PARACETAMOL, HYDROCODONE BITARTRATE (LORTAB) [Concomitant]
  6. FOLIC ACID [Concomitant]
  7. CARBINOXAMINE MALEATE [Concomitant]
  8. PRAMIPEXOLE DIHYDROCHLORIDE (MIRAPEX) [Concomitant]
  9. ESTROGENS CONJUGATED (PREMARIN) [Concomitant]
  10. RIZATRIPTAN BENZOATE (MAXALT) [Concomitant]
  11. OXYBUTYNIN [Concomitant]
  12. NORVASC [Concomitant]
  13. TERBINAFINE HYDROCHLORIDE (LAMISIL) [Concomitant]
  14. PROCHLORPERAZINE (CHLORPAZINE) [Concomitant]
  15. MOMETASONE FUROATE (NASONEX) [Concomitant]
  16. NEDOCROMIL SODIUM [Concomitant]
  17. TORSEMIDE [Concomitant]
  18. VITAMINS NOS (VITAMINS NOS) [Concomitant]

REACTIONS (1)
  - PNEUMONITIS [None]
